FAERS Safety Report 15267615 (Version 1)
Quarter: 2018Q3

REPORT INFORMATION
  Report Type: Spontaneous
  Country: US (occurrence: US)
  Receive Date: 20180724
  Receipt Date: 20180724
  Transmission Date: 20181010
  Serious: Yes (Other)
  Sender: FDA-Public Use
  Company Number: None

PATIENT
  Age: 50 Year
  Sex: Female
  Weight: 68.85 kg

DRUGS (11)
  1. ASTELIN [Concomitant]
     Active Substance: AZELASTINE HYDROCHLORIDE
  2. VITAMIN B12 [Concomitant]
     Active Substance: CYANOCOBALAMIN
  3. VITAMIN D3 [Concomitant]
     Active Substance: CHOLECALCIFEROL
  4. TRIAMTERENE. [Concomitant]
     Active Substance: TRIAMTERENE
  5. FACE CREAMS?TAZORAC [Concomitant]
  6. PHENTERMINE. [Concomitant]
     Active Substance: PHENTERMINE
  7. CLINDAMYCIN/HYDROQUINONE [Concomitant]
  8. FLUTICASONE. [Concomitant]
     Active Substance: FLUTICASONE
  9. VALSARTAN AND HYDROCHLOROTHIAZIDE TABLETS, USP 160/12.5 MG 90 TABLETS [Suspect]
     Active Substance: HYDROCHLOROTHIAZIDE\VALSARTAN
     Indication: HYPERTENSION
     Dosage: ?          QUANTITY:90 ;?
     Route: 048
     Dates: start: 20180601, end: 20180724
  10. COMPOUND PAIN CREAMS [Concomitant]
  11. VITAMIN C [Concomitant]
     Active Substance: ASCORBIC ACID

REACTIONS (4)
  - Joint swelling [None]
  - Peripheral swelling [None]
  - Product substitution issue [None]
  - Swelling face [None]

NARRATIVE: CASE EVENT DATE: 20180625
